FAERS Safety Report 18307698 (Version 1)
Quarter: 2020Q3

REPORT INFORMATION
  Report Type: Spontaneous
  Country: GB (occurrence: GB)
  Receive Date: 20200924
  Receipt Date: 20200924
  Transmission Date: 20201103
  Serious: Yes (Other)
  Sender: FDA-Public Use
  Company Number: GB-PFIZER INC-2020364235

PATIENT
  Age: 42 Year
  Sex: Female
  Weight: 59 kg

DRUGS (1)
  1. CHAMPIX [Suspect]
     Active Substance: VARENICLINE TARTRATE
     Dosage: 2 MG, 1X/DAY (0.5MG/1MG AS DIRECTED IN PACK PER TREATMENT INITIATION PACK)
     Route: 048
     Dates: start: 20200728, end: 20200826

REACTIONS (1)
  - Mental disorder [Unknown]
